FAERS Safety Report 5334205-2 (Version None)
Quarter: 2007Q2

REPORT INFORMATION
  Report Type: 
  Country: None (occurrence: None)
  Receive Date: 20070523
  Receipt Date: 20070523
  Transmission Date: 20071010
  Serious: Yes (Life-Threatening)
  Sender: FDA-Public Use
  Company Number: None

PATIENT
  Sex: Male
  Weight: 77.6 kg

DRUGS (10)
  1. SODIUM CHLORIDE SOLUTION 10% DEY LABS [Suspect]
     Indication: SPUTUM TEST
     Dosage: 3CC ONCE INHAL
     Route: 055
     Dates: start: 20070521, end: 20070521
  2. ALBUTEROL SULFATE AND IPRATROPIUM BROMIDE [Concomitant]
  3. AZITHROMYCIN [Concomitant]
  4. DOXAZOSIN MESYLATE [Concomitant]
  5. ENOXAPARIN SODIUM [Concomitant]
  6. NAPROXEN [Concomitant]
  7. PREDNISONE TAB [Concomitant]
  8. THYROID TAB [Concomitant]
  9. ALBUTEROL [Concomitant]
  10. MORPHINE [Concomitant]

REACTIONS (2)
  - CARDIO-RESPIRATORY ARREST [None]
  - CYANOSIS [None]
